FAERS Safety Report 5286712-9 (Version None)
Quarter: 2007Q2

REPORT INFORMATION
  Report Type: 
  Country: None (occurrence: None)
  Receive Date: 20070404
  Receipt Date: 20070327
  Transmission Date: 20071010
  Serious: Yes (Other)
  Sender: FDA-Public Use
  Company Number: HQWYE826227MAR07

PATIENT
  Sex: Male

DRUGS (2)
  1. SUPRAX [Suspect]
     Dosage: 400 MG (FREQUENCY UNKNOWN)
     Route: 048
     Dates: start: 20070207, end: 20070210
  2. AZITHROMYCIN [Suspect]
     Dosage: 1 G (FREQUENCY UNKNOWN)
     Route: 048
     Dates: start: 20070208, end: 20070210

REACTIONS (7)
  - COUGH [None]
  - DIARRHOEA [None]
  - GASTROINTESTINAL DISORDER [None]
  - PHARYNGOLARYNGEAL PAIN [None]
  - PRODUCTIVE COUGH [None]
  - SWELLING FACE [None]
  - VOMITING [None]
